FAERS Safety Report 4802628-3 (Version None)
Quarter: 2005Q4

REPORT INFORMATION
  Report Type: 
  Country: None (occurrence: None)
  Receive Date: 20051014
  Receipt Date: 20050411
  Transmission Date: 20060501
  Serious: Yes (Hospitalization, Other)
  Sender: FDA-Public Use
  Company Number: 2005058400

PATIENT
  Age: 82 Year
  Sex: Female

DRUGS (1)
  1. NEURONTIN [Suspect]
     Indication: PERONEAL NERVE PALSY
     Dosage: ORAL
     Route: 048
     Dates: start: 20050101

REACTIONS (3)
  - DIFFICULTY IN WALKING [None]
  - INFECTION [None]
  - OEDEMA PERIPHERAL [None]
